FAERS Safety Report 6538561-9 (Version None)
Quarter: 2010Q1

REPORT INFORMATION
  Report Type: 
  Country: None (occurrence: None)
  Receive Date: 20100113
  Receipt Date: 20100113
  Transmission Date: 20100710
  Serious: No
  Sender: FDA-Public Use
  Company Number: None

PATIENT
  Age: 38 Year
  Sex: Female
  Weight: 54.4316 kg

DRUGS (3)
  1. BUPROPION HCL [Suspect]
     Indication: DEPRESSION
     Dosage: 450 MG 1X DAY PO
     Route: 048
     Dates: start: 20080601, end: 20080701
  2. BUPROPION HCL [Suspect]
     Indication: DEPRESSION
     Dosage: 450 MG 1X DAY PO
     Route: 048
     Dates: start: 20080815, end: 20080901
  3. WELLBUTRIN XL [Suspect]

REACTIONS (8)
  - ANXIETY [None]
  - CONFUSIONAL STATE [None]
  - DEPRESSION [None]
  - DISTURBANCE IN ATTENTION [None]
  - HEADACHE [None]
  - MOOD SWINGS [None]
  - PRODUCT SUBSTITUTION ISSUE [None]
  - VISION BLURRED [None]
